FAERS Safety Report 9200243 (Version 1)
Quarter: 2013Q1

REPORT INFORMATION
  Report Type: Report from Study
  Country: US (occurrence: US)
  Receive Date: 20130329
  Receipt Date: 20130329
  Transmission Date: 20140127
  Serious: Yes (Other)
  Sender: FDA-Public Use
  Company Number: US-PFIZER INC-2013096746

PATIENT
  Age: 62 Year
  Sex: Male

DRUGS (6)
  1. CARBOPLATIN [Suspect]
     Indication: HEAD AND NECK CANCER
     Dosage: UNK
     Dates: start: 20130128
  2. CARBOPLATIN [Suspect]
     Indication: THROAT CANCER
  3. TEMSIROLIMUS [Suspect]
     Indication: HEAD AND NECK CANCER
     Dosage: UNK
     Dates: start: 20130128
  4. TEMSIROLIMUS [Suspect]
     Indication: THROAT CANCER
  5. TAXOL [Suspect]
     Indication: HEAD AND NECK CANCER
     Dosage: UNK
     Dates: start: 20130128
  6. TAXOL [Suspect]
     Indication: THROAT CANCER

REACTIONS (1)
  - Thrombosis [Unknown]
